FAERS Safety Report 8971151 (Version 2)
Quarter: 2013Q1

REPORT INFORMATION
  Report Type: Report from Study
  Country: NL (occurrence: NL)
  Receive Date: 20121218
  Receipt Date: 20130325
  Transmission Date: 20140127
  Serious: Yes (Hospitalization)
  Sender: FDA-Public Use
  Company Number: NL-ASTELLAS-2012US012122

PATIENT
  Age: 14 Year
  Sex: Male

DRUGS (4)
  1. TACROLIMUS OINTMENT [Suspect]
     Indication: DERMATITIS ATOPIC
     Dosage: 0.03 %, UID/QD PRN
     Route: 061
     Dates: start: 20071126
  2. TACROLIMUS OINTMENT [Suspect]
     Dosage: 0.03 %, ONCE A DAY TWICE WEEKLY
     Route: 061
     Dates: start: 20091214
  3. CETIRIZINE [Concomitant]
     Indication: HYPERSENSITIVITY
     Dosage: 10 MG, UID/QD
     Route: 048
     Dates: start: 20061018
  4. VASELINE                           /00473501/ [Concomitant]
     Indication: PRODUCT USED FOR UNKNOWN INDICATION
     Dosage: UNK UNK, UID/QD
     Route: 061

REACTIONS (2)
  - Eczema [Recovered/Resolved]
  - Eczema impetiginous [Recovered/Resolved]
